FAERS Safety Report 5199640-4 (Version None)
Quarter: 2007Q1

REPORT INFORMATION
  Report Type: 
  Country: None (occurrence: None)
  Receive Date: 20070103
  Receipt Date: 20070103
  Transmission Date: 20070707
  Serious: Yes (Hospitalization)
  Sender: FDA-Public Use
  Company Number: None

PATIENT
  Age: 77 Year
  Sex: Male

DRUGS (14)
  1. BACTRIM [Suspect]
     Indication: CYSTITIS
     Dosage: UNKNOWN
     Dates: start: 20060104, end: 20060109
  2. POTASSIUM CHLORIDE [Concomitant]
  3. ETHACRYNIC ACID [Concomitant]
  4. HYDROXYUREA [Concomitant]
  5. SPIRIVA [Concomitant]
  6. PROTONIX [Concomitant]
  7. MEXILETINE HYDROCHLORIDE [Concomitant]
  8. ALDACTONE [Concomitant]
  9. FOLIC ACID [Concomitant]
  10. METOPROLOL SUCCINATE [Concomitant]
  11. ZOCOR [Concomitant]
  12. MORPHINE [Concomitant]
  13. AMBIEN [Concomitant]
  14. TYLENOL [Concomitant]

REACTIONS (1)
  - STEVENS-JOHNSON SYNDROME [None]
